FAERS Safety Report 10930455 (Version 1)
Quarter: 2015Q1

REPORT INFORMATION
  Report Type: Spontaneous
  Country: AT (occurrence: AT)
  Receive Date: 20150319
  Receipt Date: 20150319
  Transmission Date: 20150721
  Serious: Yes (Hospitalization)
  Sender: FDA-Public Use
  Company Number: AT-TEVA-517967ISR

PATIENT
  Age: 82 Year
  Sex: Female
  Weight: 70 kg

DRUGS (24)
  1. MOTRIM [Suspect]
     Active Substance: TRIMETHOPRIM
     Dosage: 400 MILLIGRAM DAILY;
     Route: 048
     Dates: start: 20140722, end: 20140724
  2. THYREX [Concomitant]
     Active Substance: LEVOTHYROXINE SODIUM
     Route: 048
  3. OLEOVIT D3 [Concomitant]
     Dates: start: 20140805
  4. MIRTAZAPINE. [Suspect]
     Active Substance: MIRTAZAPINE
     Route: 048
     Dates: start: 20140723, end: 20140729
  5. MIRTAZAPINE. [Suspect]
     Active Substance: MIRTAZAPINE
     Route: 048
     Dates: start: 20140730, end: 20140803
  6. MIRTAZAPINE. [Suspect]
     Active Substance: MIRTAZAPINE
     Dates: start: 20140805, end: 20140805
  7. OSTEOVIVA [Concomitant]
     Dates: end: 20140808
  8. TEMESTA [Concomitant]
     Active Substance: LORAZEPAM
     Dosage: SINCE YEARS
     Route: 048
  9. NEUROBION FORTE [Concomitant]
     Active Substance: CYANOCOBALAMIN\PYRIDOXINE HYDROCHLORIDE\THIAMINE DISULFIDE
     Dates: start: 20140717
  10. MOTRIM [Suspect]
     Active Substance: TRIMETHOPRIM
     Dosage: 800 MILLIGRAM DAILY; DOSIS TAPERED
     Route: 048
     Dates: start: 20140725, end: 20140728
  11. TEBOFORTAN [Concomitant]
     Dates: end: 20140717
  12. RATIOGRASTIM 30 MIO.I.E./0,5 ML [Concomitant]
     Dates: start: 20140804, end: 20140804
  13. FRAGMIN [Suspect]
     Active Substance: DALTEPARIN SODIUM
     Dosage: 15000 MILLIGRAM DAILY; SHORTLY BEFORE 17-JUL-2014
     Route: 058
     Dates: start: 201407, end: 20140818
  14. OLANZAPINE. [Concomitant]
     Active Substance: OLANZAPINE
     Dates: start: 201405, end: 20140717
  15. ANTIBIOFILUS [Concomitant]
     Dosage: 3 DOSAGE FORMS DAILY;
     Dates: start: 201407, end: 20140722
  16. MIRTAZAPINE. [Suspect]
     Active Substance: MIRTAZAPINE
     Route: 048
     Dates: start: 20140721, end: 20140722
  17. TEMESTA [Concomitant]
     Active Substance: LORAZEPAM
     Route: 048
     Dates: start: 20140820, end: 20140821
  18. KALCIUM D-VITAMIN [Concomitant]
     Dosage: SINCE A LONG TIME
     Route: 048
  19. PANTOPRAZOLE [Suspect]
     Active Substance: PANTOPRAZOLE SODIUM
     Dosage: SINCE A LONG TIME
     Route: 048
  20. DICLOFENAC [Concomitant]
     Active Substance: DICLOFENAC
     Dates: end: 20140717
  21. ATARAX [Concomitant]
     Active Substance: HYDROXYZINE\HYDROXYZINE HYDROCHLORIDE
     Dates: start: 20140717, end: 20140717
  22. ANAEROBEX [Concomitant]
     Dosage: 3 DOSAGE FORMS DAILY;
     Dates: start: 201407, end: 20140720
  23. VALERIANA OFFICINALIS ROOT (UNKNOWN FOR BALDRIAN) [Concomitant]
     Dates: start: 20140809
  24. VALERIANA OFFICINALIS ROOT (UNKNOWN FOR BALDRIAN) [Concomitant]
     Dates: end: 20140717

REACTIONS (1)
  - Neutropenia [Unknown]

NARRATIVE: CASE EVENT DATE: 20140804
